FAERS Safety Report 5894820-4 (Version None)
Quarter: 2008Q3

REPORT INFORMATION
  Report Type: 
  Country: None (occurrence: None)
  Receive Date: 20080825
  Receipt Date: 20080207
  Transmission Date: 20090109
  Serious: Yes (Other)
  Sender: FDA-Public Use
  Company Number: 08H-163-0313865-00

PATIENT
  Age: 17 Day

DRUGS (7)
  1. LIPOSYN 20% [Suspect]
     Indication: DRUG USE FOR UNKNOWN INDICATION
     Dosage: INTRAVENOUS
     Route: 042
     Dates: start: 20071120
  2. AMINOSYN PF 7% (AMINOSYN) [Concomitant]
  3. WATER FOR INJECTION (WATER FOR INJECTION) [Concomitant]
  4. DEXTROSE 70% IN WATER (GLUCOSE INJECTION) [Concomitant]
  5. HEPARIN 25,000 UNITS/250ML (HEPARIN) [Concomitant]
  6. SODIUM CHLORIDE 14.6% (SODIUM CHLORIDE) [Concomitant]
  7. OXYGEN (OXYGEN) [Concomitant]

REACTIONS (2)
  - MEDICATION ERROR [None]
  - OVERDOSE [None]
